FAERS Safety Report 9324898 (Version 2)
Quarter: 2013Q2

REPORT INFORMATION
  Report Type: Spontaneous
  Country: DE (occurrence: DE)
  Receive Date: 20130603
  Receipt Date: 20130603
  Transmission Date: 20140414
  Serious: Yes (Other)
  Sender: FDA-Public Use
  Company Number: DE-TEVA-404408GER

PATIENT
  Age: 26 Year
  Sex: Female

DRUGS (1)
  1. LAMOTRIGIN-TEVA 50 MG TABLETTEN [Suspect]
     Dosage: 100 MILLIGRAM DAILY; 1-0-1
     Route: 048
     Dates: start: 201303

REACTIONS (1)
  - Measles [Unknown]
